FAERS Safety Report 7526391-0 (Version None)
Quarter: 2011Q2

REPORT INFORMATION
  Report Type: 
  Country: None (occurrence: None)
  Receive Date: 20110603
  Receipt Date: 20110603
  Transmission Date: 20111010
  Serious: Yes (Other)
  Sender: FDA-Public Use
  Company Number: None

PATIENT
  Sex: Female
  Weight: 80 kg

DRUGS (13)
  1. SERTRALINE HYDROCHLORIDE [Concomitant]
  2. METOPROLOL [Concomitant]
  3. MVI + CA++ [Concomitant]
  4. PREDNISONE [Concomitant]
  5. OPANA ER [Concomitant]
  6. CRESTOR [Concomitant]
  7. KLOR-CON [Concomitant]
  8. METHOTREXATE [Concomitant]
  9. FOLIC ACID [Concomitant]
  10. LASIX [Concomitant]
  11. PANTOPRAZOLE [Concomitant]
  12. REMICADE [Suspect]
     Indication: RHEUMATOID ARTHRITIS
     Dosage: 400MG (5MG/KG) Q6WKS IV
     Route: 042
     Dates: start: 20040618
  13. JANTOVEN [Concomitant]

REACTIONS (1)
  - CHRONIC LYMPHOCYTIC LEUKAEMIA [None]
